FAERS Safety Report 20644922 (Version 1)
Quarter: 2022Q1

REPORT INFORMATION
  Report Type: Spontaneous
  Country: US (occurrence: US)
  Receive Date: 20220328
  Receipt Date: 20220328
  Transmission Date: 20220423
  Serious: Yes (Other)
  Sender: FDA-Public Use
  Company Number: US-PFIZER INC-2020061087

PATIENT
  Age: 55 Year
  Sex: Male

DRUGS (2)
  1. RAPAMUNE [Suspect]
     Active Substance: SIROLIMUS
     Indication: Liver transplant
     Dosage: 0.5 AND 1 MG, 90 DAY SUPPLY, TAKE 1 OF EACH DAILY
  2. RAPAMUNE [Suspect]
     Active Substance: SIROLIMUS
     Indication: Drug therapy

REACTIONS (3)
  - Dialysis [Unknown]
  - Product use in unapproved indication [Unknown]
  - Off label use [Unknown]
